FAERS Safety Report 12110909 (Version 1)
Quarter: 2016Q1

REPORT INFORMATION
  Report Type: Spontaneous
  Country: US (occurrence: US)
  Receive Date: 20160224
  Receipt Date: 20160224
  Transmission Date: 20160526
  Serious: Yes (Other)
  Sender: FDA-Public Use
  Company Number: US-SA-2016SA032850

PATIENT
  Age: 69 Year
  Sex: Male

DRUGS (2)
  1. LANTUS SOLOSTAR [Suspect]
     Active Substance: INSULIN GLARGINE
     Indication: TYPE 2 DIABETES MELLITUS
     Dosage: START DATE: MANY YEARS DOSE:30 UNIT(S)
     Route: 065
  2. SOLOSTAR [Concomitant]
     Active Substance: DEVICE

REACTIONS (8)
  - Craniocerebral injury [Unknown]
  - Memory impairment [Unknown]
  - Gait disturbance [Unknown]
  - Weight decreased [Unknown]
  - Visual impairment [Unknown]
  - Unevaluable event [Unknown]
  - Disability [Unknown]
  - Blood glucose increased [Recovered/Resolved]
